FAERS Safety Report 6104842-6 (Version None)
Quarter: 2009Q1

REPORT INFORMATION
  Report Type: 
  Country: None (occurrence: None)
  Receive Date: 20090306
  Receipt Date: 20090303
  Transmission Date: 20090719
  Serious: Yes (Other)
  Sender: FDA-Public Use
  Company Number: SV-JNJFOC-20090300040

PATIENT
  Age: 7 Year
  Sex: Male
  Weight: 28.12 kg

DRUGS (2)
  1. CONCERTA [Suspect]
     Indication: ATTENTION DEFICIT/HYPERACTIVITY DISORDER
     Route: 048
  2. VALPROIC ACID [Concomitant]
     Indication: ELECTROENCEPHALOGRAM ABNORMAL
     Route: 048

REACTIONS (1)
  - TRI-IODOTHYRONINE INCREASED [None]
